FAERS Safety Report 25011140 (Version 1)
Quarter: 2025Q1

REPORT INFORMATION
  Report Type: Spontaneous
  Country: SE (occurrence: SE)
  Receive Date: 20250226
  Receipt Date: 20250226
  Transmission Date: 20250409
  Serious: Yes (Hospitalization, Other)
  Sender: BRISTOL-MYERS SQUIBB COMPANY
  Company Number: None

PATIENT
  Age: 85 Year
  Sex: Male

DRUGS (1)
  1. ELIQUIS [Suspect]
     Active Substance: APIXABAN
     Indication: Atrial fibrillation
     Dates: end: 20250118

REACTIONS (5)
  - Confusional state [Unknown]
  - Fall [Unknown]
  - Subdural haematoma [Unknown]
  - Haematoma [Unknown]
  - Headache [Unknown]

NARRATIVE: CASE EVENT DATE: 20250118
